FAERS Safety Report 8274291-3 (Version None)
Quarter: 2012Q2

REPORT INFORMATION
  Report Type: 
  Country: None (occurrence: None)
  Receive Date: 20120411
  Receipt Date: 20120411
  Transmission Date: 20120825
  Serious: Yes (Other)
  Sender: FDA-Public Use
  Company Number: None

PATIENT
  Age: 40 Month
  Sex: Male
  Weight: 15.422 kg

DRUGS (2)
  1. MOMETASONE FUROATE [Suspect]
     Indication: ECZEMA
     Dosage: SMALL AMOUNT
     Route: 061
     Dates: start: 20120222, end: 20120401
  2. MOMETASONE FUROATE [Concomitant]
     Dosage: SMALL AMOUNT
     Route: 061
     Dates: start: 20120401, end: 20120401

REACTIONS (3)
  - PAIN OF SKIN [None]
  - PRODUCT QUALITY ISSUE [None]
  - NO REACTION ON PREVIOUS EXPOSURE TO DRUG [None]
